FAERS Safety Report 4357312-X (Version None)
Quarter: 2004Q2

REPORT INFORMATION
  Report Type: 
  Country: None (occurrence: None)
  Receive Date: 20040507
  Receipt Date: 20040416
  Transmission Date: 20050107
  Serious: Yes (Hospitalization, Other)
  Sender: FDA-Public Use
  Company Number: USA040465257

PATIENT
  Age: 63 Year
  Sex: Male

DRUGS (10)
  1. HUMULIN R [Suspect]
     Indication: DIABETES MELLITUS INSULIN-DEPENDENT
  2. HUMULIN N [Suspect]
     Indication: DIABETES MELLITUS INSULIN-DEPENDENT
  3. ENALAPRIL MALEATE [Concomitant]
  4. NORVASC [Concomitant]
  5. LIPITOR [Concomitant]
  6. COUMADIN [Concomitant]
  7. SYNTHROID [Concomitant]
  8. NORMODYNE [Concomitant]
  9. ASPIRIN [Concomitant]
  10. CELEBREX [Concomitant]

REACTIONS (7)
  - ANGIOPLASTY [None]
  - BLOOD GLUCOSE INCREASED [None]
  - CORONARY ANGIOPLASTY [None]
  - LOSS OF CONSCIOUSNESS [None]
  - PERIPHERAL VASCULAR DISORDER [None]
  - PHARMACEUTICAL PRODUCT COMPLAINT [None]
  - STUPOR [None]
